FAERS Safety Report 24803456 (Version 1)
Quarter: 2025Q1

REPORT INFORMATION
  Report Type: Spontaneous
  Country: FR (occurrence: FR)
  Receive Date: 20250103
  Receipt Date: 20250103
  Transmission Date: 20250409
  Serious: Yes (Hospitalization)
  Sender: ROCHE
  Company Number: None

PATIENT
  Age: 47 Year
  Sex: Female
  Weight: 68 kg

DRUGS (13)
  1. CELLCEPT [Suspect]
     Active Substance: MYCOPHENOLATE MOFETIL
     Indication: Renal transplant
     Route: 048
     Dates: end: 20240411
  2. TACROLIMUS [Concomitant]
     Active Substance: TACROLIMUS
  3. DITROPAN  5 mg, scored tablet [Concomitant]
  4. DOLIPRANE [Concomitant]
     Active Substance: ACETAMINOPHEN
  5. LANSOPRAZOLE ABBOTT 30 mg, gastro-resistant capsule [Concomitant]
  6. WEAK LASILIX 20 mg, tablet [Concomitant]
  7. MACROGOL 4000 BIOGARAN [Concomitant]
  8. FLUINDIONE [Concomitant]
     Active Substance: FLUINDIONE
  9. SMECTA [Concomitant]
     Active Substance: MONTMORILLONITE
  10. SOLUPRED [Concomitant]
  11. SPASFON [Concomitant]
  12. RACECADOTRIL [Concomitant]
     Active Substance: RACECADOTRIL
  13. ALBUTEROL [Concomitant]
     Active Substance: ALBUTEROL

REACTIONS (2)
  - Cytomegalovirus enterocolitis [Recovered/Resolved]
  - Secondary immunodeficiency [Recovered/Resolved]

NARRATIVE: CASE EVENT DATE: 20240411
